FAERS Safety Report 5850743-8 (Version None)
Quarter: 2008Q3

REPORT INFORMATION
  Report Type: 
  Country: None (occurrence: None)
  Receive Date: 20080820
  Receipt Date: 20080814
  Transmission Date: 20090109
  Serious: Yes (Hospitalization)
  Sender: FDA-Public Use
  Company Number: BE-BRISTOL-MYERS SQUIBB COMPANY-14294102

PATIENT
  Age: 69 Year
  Sex: Female
  Weight: 70 kg

DRUGS (4)
  1. ABILIFY [Suspect]
     Indication: CONFUSIONAL STATE
     Route: 048
     Dates: start: 20080723, end: 20080727
  2. PROLOPA [Concomitant]
     Route: 048
  3. PROTHIADEN [Concomitant]
     Route: 048
  4. CAMCOLIT [Concomitant]
     Route: 048

REACTIONS (2)
  - DIABETES INSIPIDUS [None]
  - FLUID INTAKE REDUCED [None]
